FAERS Safety Report 5068201-X (Version None)
Quarter: 2006Q3

REPORT INFORMATION
  Report Type: 
  Country: None (occurrence: None)
  Receive Date: 20060802
  Receipt Date: 20050504
  Transmission Date: 20061208
  Serious: Yes (Other)
  Sender: FDA-Public Use
  Company Number: US-BRISTOL-MYERS SQUIBB COMPANY-12956215

PATIENT
  Age: 66 Year
  Sex: Female
  Weight: 66 kg

DRUGS (8)
  1. COUMADIN [Suspect]
     Indication: ATRIAL FIBRILLATION
     Route: 048
     Dates: start: 20050420, end: 20050801
  2. LOVENOX [Concomitant]
     Dates: end: 20050101
  3. REMERON [Concomitant]
     Dates: start: 20050501, end: 20050101
  4. XANAX [Concomitant]
     Dates: start: 20050401, end: 20050401
  5. ZOLOFT [Concomitant]
     Dates: start: 20050401, end: 20050401
  6. ATIVAN [Concomitant]
  7. ZYPREXA [Concomitant]
  8. CALAN [Concomitant]

REACTIONS (10)
  - ALOPECIA [None]
  - BLOOD PRESSURE INCREASED [None]
  - CONTUSION [None]
  - CYANOSIS [None]
  - DIZZINESS [None]
  - DRUG INEFFECTIVE [None]
  - HEPATIC ENZYME INCREASED [None]
  - INTERNATIONAL NORMALISED RATIO FLUCTUATION [None]
  - NAUSEA [None]
  - WEIGHT DECREASED [None]
